FAERS Safety Report 14427354 (Version 2)
Quarter: 2019Q1

REPORT INFORMATION
  Report Type: Spontaneous
  Country: US (occurrence: US)
  Receive Date: 20180123
  Receipt Date: 20190303
  Transmission Date: 20190417
  Serious: No
  Sender: FDA-Public Use
  Company Number: US-IMPAX LABORATORIES, INC-2017-IPXL-03397

PATIENT
  Age: 60 Year
  Sex: Male

DRUGS (2)
  1. RYTARY [Suspect]
     Active Substance: CARBIDOPA\LEVODOPA
     Dosage: 23.75MG/95MG,2 CAPSULE 3 TIMES DAILY
     Route: 048
     Dates: start: 20171120
  2. RYTARY [Suspect]
     Active Substance: CARBIDOPA\LEVODOPA
     Indication: PRODUCT USED FOR UNKNOWN INDICATION
     Dosage: 23.75MG/95MG,1 CAPSULE 3 TIMES DAILY
     Route: 048
     Dates: start: 20171118, end: 20171120

REACTIONS (1)
  - Drug ineffective [Unknown]
